FAERS Safety Report 8053366 (Version 3)
Quarter: 2014Q1

REPORT INFORMATION
  Report Type: Spontaneous
  Country: US (occurrence: US)
  Receive Date: 20110725
  Receipt Date: 20140205
  Transmission Date: 20141002
  Serious: Yes (Other)
  Sender: FDA-Public Use
  Company Number: US-BAYER-2011-063060

PATIENT
  Age: 30 Year
  Sex: Female
  Weight: 68 kg

DRUGS (9)
  1. YAZ [Suspect]
     Indication: PREMENSTRUAL SYNDROME
     Dosage: UNK
     Dates: start: 20090102, end: 20100413
  2. OCELLA [Suspect]
     Indication: PREMENSTRUAL SYNDROME
     Dosage: UNK
     Dates: start: 20090102, end: 20100413
  3. FLUVOXAMINE [Concomitant]
     Dosage: 50 MG, UNK
     Route: 048
  4. FLUVOXAMINE [Concomitant]
     Dosage: 100 MG, UNK
     Route: 048
  5. LAMICTAL [Concomitant]
     Dosage: 100 MG, UNK
     Route: 048
  6. GABAPENTIN [Concomitant]
     Dosage: 100 MG, UNK
     Route: 048
  7. NEFAZODONE [Concomitant]
     Dosage: 150 MG, UNK
     Route: 048
  8. PROMETHAZINE [Concomitant]
     Dosage: 25 MG, UNK
     Route: 048
  9. HYDROCODONE W/ACETAMINOPHEN [Concomitant]
     Dosage: UNK
     Route: 048
     Dates: start: 20090723, end: 20090725

REACTIONS (9)
  - Cholecystitis chronic [None]
  - Gallbladder injury [None]
  - Deep vein thrombosis [None]
  - Injury [None]
  - Pain [None]
  - General physical health deterioration [None]
  - General physical health deterioration [None]
  - Emotional distress [None]
  - Anxiety [None]
